FAERS Safety Report 16625176 (Version 5)
Quarter: 2019Q4

REPORT INFORMATION
  Report Type: Spontaneous
  Country: US (occurrence: US)
  Receive Date: 20190724
  Receipt Date: 20191017
  Transmission Date: 20200122
  Serious: Yes (Hospitalization, Other)
  Sender: FDA-Public Use
  Company Number: US-PFIZER INC-2019312885

PATIENT
  Age: 61 Year
  Sex: Female
  Weight: 70.3 kg

DRUGS (6)
  1. CYMBALTA [Concomitant]
     Active Substance: DULOXETINE HYDROCHLORIDE
     Dosage: UNK
     Dates: start: 201710
  2. EFFEXOR [Concomitant]
     Active Substance: VENLAFAXINE HYDROCHLORIDE
     Dosage: UNK
     Dates: start: 201710
  3. EFFEXOR [Concomitant]
     Active Substance: VENLAFAXINE HYDROCHLORIDE
     Dosage: 150 MG, 1X/DAY
     Dates: start: 2005
  4. CYMBALTA [Concomitant]
     Active Substance: DULOXETINE HYDROCHLORIDE
     Dosage: 80 MG, 1X/DAY
     Dates: start: 201708
  5. GABAPENTIN. [Suspect]
     Active Substance: GABAPENTIN
     Indication: ANXIETY
     Dosage: 3000 MG, DAILY [600 MG 5 TIMES A DAY]
     Dates: start: 201708
  6. GABAPENTIN. [Suspect]
     Active Substance: GABAPENTIN
     Indication: PANIC ATTACK
     Dosage: 3000 MG, DAILY(600 MG 5 X DAY)
     Dates: start: 201710

REACTIONS (6)
  - Urinary incontinence [Not Recovered/Not Resolved]
  - Cataract [Recovering/Resolving]
  - Off label use [Recovered/Resolved]
  - Visual impairment [Not Recovered/Not Resolved]
  - Vision blurred [Unknown]
  - Product use in unapproved indication [Recovered/Resolved]

NARRATIVE: CASE EVENT DATE: 201708
